FAERS Safety Report 8449521-5 (Version None)
Quarter: 2012Q2

REPORT INFORMATION
  Report Type: 
  Country: None (occurrence: None)
  Receive Date: 20120619
  Receipt Date: 20120606
  Transmission Date: 20120825
  Serious: Yes (Hospitalization)
  Sender: FDA-Public Use
  Company Number: FR-MYLANLABS-2012S1011695

PATIENT
  Age: 88 Year
  Sex: Female

DRUGS (5)
  1. ESCITALOPRAM [Suspect]
     Indication: MAJOR DEPRESSION
     Dosage: 5 MG/DAY
     Route: 065
  2. TRAVOPROST [Concomitant]
     Indication: GLAUCOMA
     Route: 065
  3. TIMOLOL MALEATE [Concomitant]
     Indication: GLAUCOMA
     Route: 065
  4. LEVOTHYROXINE SODIUM [Concomitant]
     Indication: HYPOTHYROIDISM
     Route: 065
  5. MICONAZOLE [Interacting]
     Indication: ORAL CANDIDIASIS
     Dosage: 50 MG/DAY

REACTIONS (3)
  - DRUG INTERACTION [None]
  - SEROTONIN SYNDROME [None]
  - HYPONATRAEMIA [None]
